FAERS Safety Report 7480214-7 (Version None)
Quarter: 2011Q2

REPORT INFORMATION
  Report Type: 
  Country: None (occurrence: None)
  Receive Date: 20110516
  Receipt Date: 20110506
  Transmission Date: 20111010
  Serious: No
  Sender: FDA-Public Use
  Company Number: US-BIOGENIDEC-2011BI017478

PATIENT
  Sex: Female

DRUGS (4)
  1. TYSABRI [Suspect]
     Indication: MULTIPLE SCLEROSIS
     Route: 042
     Dates: start: 20101006
  2. AVONEX [Concomitant]
     Indication: MULTIPLE SCLEROSIS
     Route: 030
     Dates: start: 20101001
  3. TYSABRI [Suspect]
     Route: 042
     Dates: start: 20070905, end: 20080716
  4. TYSABRI [Suspect]
     Route: 042
     Dates: start: 20100217, end: 20100325

REACTIONS (1)
  - GAIT DISTURBANCE [None]
